FAERS Safety Report 7164273-7 (Version None)
Quarter: 2010Q4

REPORT INFORMATION
  Report Type: 
  Country: None (occurrence: None)
  Receive Date: 20101215
  Receipt Date: 20101209
  Transmission Date: 20110411
  Serious: Yes (Hospitalization)
  Sender: FDA-Public Use
  Company Number: FR-BRISTOL-MYERS SQUIBB COMPANY-15435126

PATIENT
  Age: 79 Year
  Sex: Female

DRUGS (4)
  1. COUMADIN [Suspect]
  2. FLECAINIDE ACETATE [Concomitant]
  3. CARDENSIEL [Concomitant]
  4. FOSAVANCE [Concomitant]

REACTIONS (2)
  - HEAD INJURY [None]
  - SUBDURAL HAEMATOMA [None]
